FAERS Safety Report 15776915 (Version 3)
Quarter: 2019Q1

REPORT INFORMATION
  Report Type: Spontaneous
  Country: JP (occurrence: JP)
  Receive Date: 20181231
  Receipt Date: 20190131
  Transmission Date: 20190417
  Serious: Yes (Hospitalization, Other)
  Sender: FDA-Public Use
  Company Number: JP-009507513-1812JPN002411J

PATIENT
  Age: 6 Decade
  Sex: Female

DRUGS (1)
  1. KEYTRUDA [Suspect]
     Active Substance: PEMBROLIZUMAB
     Indication: NON-SMALL CELL LUNG CANCER
     Dosage: 200 MILLIGRAM, Q3W
     Route: 041
     Dates: start: 201810, end: 201812

REACTIONS (7)
  - Interstitial lung disease [Unknown]
  - Vascular wall hypertrophy [Unknown]
  - Swelling [Unknown]
  - Thyroid disorder [Unknown]
  - Sjogren^s syndrome [Recovered/Resolved]
  - Hepatic haemorrhage [Recovered/Resolved]
  - Pleural effusion [Unknown]

NARRATIVE: CASE EVENT DATE: 201901
